FAERS Safety Report 8773918 (Version 1)
Quarter: 2012Q4

REPORT INFORMATION
  Report Type: 
  Country: US (occurrence: US)
  Receive Date: 20120907
  Receipt Date: 20120907
  Transmission Date: 20130627
  Serious: No
  Sender: FDA-Public Use
  Company Number: US-PFIZER INC-2012218428

PATIENT
  Sex: Female

DRUGS (5)
  1. MORPHINE SULFATE [Suspect]
  2. TOPROL [Suspect]
  3. TRAMADOL [Suspect]
  4. CELEXA [Suspect]
  5. REGLAN [Suspect]

REACTIONS (1)
  - Drug hypersensitivity [Unknown]
